FAERS Safety Report 9205813 (Version 2)
Quarter: 2013Q4

REPORT INFORMATION
  Report Type: Spontaneous
  Country: US (occurrence: None)
  Receive Date: 20130401
  Receipt Date: 20131001
  Transmission Date: 20140711
  Serious: Yes (Disabling, Other)
  Sender: FDA-Public Use
  Company Number: 1303-396

PATIENT
  Age: 84 Year
  Sex: Male

DRUGS (1)
  1. EYLEA (AFLIBERCEPT)(INJECTION)(AFLIBERCEPT) [Suspect]
     Dosage: INTRAVITREAL

REACTIONS (2)
  - Non-infectious endophthalmitis [None]
  - Visual acuity reduced [None]
